FAERS Safety Report 9840064 (Version 1)
Quarter: 2013Q4

REPORT INFORMATION
  Report Type: Spontaneous
  Country: US (occurrence: None)
  Receive Date: 20131206
  Receipt Date: 20131206
  Transmission Date: 20140711
  Serious: Yes (Hospitalization)
  Sender: FDA-Public Use
  Company Number: 362902

PATIENT
  Age: 65 Year
  Sex: Male

DRUGS (4)
  1. NOVOLOG MIX 70/30 FLEXPEN [Suspect]
     Indication: TYPE 2 DIABETES MELLITUS
     Route: 058
  2. SIMVASTATIN [Suspect]
  3. AMLODIPINE [Suspect]
  4. LISINOPRIL [Concomitant]

REACTIONS (2)
  - Product quality issue [None]
  - Blood glucose increased [None]
